FAERS Safety Report 18323468 (Version 5)
Quarter: 2022Q2

REPORT INFORMATION
  Report Type: Report from Study
  Country: US (occurrence: US)
  Receive Date: 20200929
  Receipt Date: 20220420
  Transmission Date: 20220721
  Serious: Yes (Hospitalization)
  Sender: FDA-Public Use
  Company Number: NVSC2020US260563

PATIENT
  Age: 4 Year
  Sex: Male

DRUGS (3)
  1. ILARIS [Suspect]
     Active Substance: CANAKINUMAB
     Indication: Pyrexia
     Dosage: 45 MG, QMO
     Route: 058
  2. ILARIS [Suspect]
     Active Substance: CANAKINUMAB
     Dosage: 70 MG, EVERY 4 WEEKS
     Route: 058
     Dates: start: 20200820
  3. ILARIS [Suspect]
     Active Substance: CANAKINUMAB
     Dosage: 80 MG, EVERY 4 WEEKS
     Route: 058

REACTIONS (4)
  - Pneumonia [Recovered/Resolved]
  - Pneumonia [Unknown]
  - Illness [Unknown]
  - Pyrexia [Unknown]

NARRATIVE: CASE EVENT DATE: 20220306
